FAERS Safety Report 17197738 (Version 1)
Quarter: 2019Q4

REPORT INFORMATION
  Report Type: Spontaneous
  Country: US (occurrence: US)
  Receive Date: 20191224
  Receipt Date: 20191224
  Transmission Date: 20200122
  Serious: No
  Sender: FDA-Public Use
  Company Number: US-TEVA-2019-US-1155340

PATIENT
  Sex: Female

DRUGS (1)
  1. FIORICET WITH CODEINE [Suspect]
     Active Substance: ACETAMINOPHEN\BUTALBITAL\CAFFEINE\CODEINE PHOSPHATE
     Indication: HEADACHE
     Dosage: FIORICET WITH CODEINE,50 MG / 300 MG / 40 MG / 30 MG
     Route: 065
     Dates: start: 2019

REACTIONS (3)
  - Depression [Unknown]
  - Fatigue [Unknown]
  - Drug ineffective [Unknown]

NARRATIVE: CASE EVENT DATE: 2019
